FAERS Safety Report 4414856-X (Version None)
Quarter: 2004Q3

REPORT INFORMATION
  Report Type: 
  Country: None (occurrence: None)
  Receive Date: 20040804
  Receipt Date: 20031219
  Transmission Date: 20050211
  Serious: No
  Sender: FDA-Public Use
  Company Number: US-BRISTOL-MYERS SQUIBB COMPANY-12462263

PATIENT
  Age: 76 Year
  Sex: Female
  Weight: 73 kg

DRUGS (7)
  1. GLUCOVANCE [Suspect]
     Indication: DIABETES MELLITUS
     Route: 048
     Dates: start: 20031128
  2. LASIX [Concomitant]
     Indication: OEDEMA PERIPHERAL
     Dates: start: 20031128
  3. POTASSIUM [Concomitant]
     Dates: start: 20031128
  4. THYROID TAB [Concomitant]
  5. AMITRIPTYLINE HCL [Concomitant]
  6. ACCUPRIL [Concomitant]
  7. FELDENE [Concomitant]

REACTIONS (3)
  - ASTHENIA [None]
  - DIZZINESS [None]
  - OEDEMA PERIPHERAL [None]
